FAERS Safety Report 6837130-0 (Version None)
Quarter: 2010Q3

REPORT INFORMATION
  Report Type: 
  Country: None (occurrence: None)
  Receive Date: 20100713
  Receipt Date: 20070717
  Transmission Date: 20110219
  Serious: No
  Sender: FDA-Public Use
  Company Number: US-PFIZER INC-2007038011

PATIENT
  Sex: Male
  Weight: 89.81 kg

DRUGS (2)
  1. CHANTIX [Suspect]
     Indication: SMOKING CESSATION THERAPY
     Route: 048
     Dates: start: 20070401
  2. AMITRIPTYLINE HYDROCHLORIDE [Concomitant]

REACTIONS (4)
  - HEADACHE [None]
  - NASOPHARYNGITIS [None]
  - NECK PAIN [None]
  - SINUSITIS [None]
